FAERS Safety Report 7500463-9 (Version None)
Quarter: 2011Q2

REPORT INFORMATION
  Report Type: 
  Country: None (occurrence: None)
  Receive Date: 20110524
  Receipt Date: 20110408
  Transmission Date: 20111010
  Serious: No
  Sender: FDA-Public Use
  Company Number: US-BRISTOL-MYERS SQUIBB COMPANY-15662372

PATIENT
  Age: 73 Year
  Sex: Female

DRUGS (8)
  1. KLOR-CON [Concomitant]
  2. LIPITOR [Concomitant]
  3. DIOVAN HCT [Concomitant]
  4. GLIMEPIRIDE [Concomitant]
  5. FISH OIL [Concomitant]
  6. ONGLYZA [Suspect]
     Dates: start: 20101207, end: 20110101
  7. AGGRENOX [Concomitant]
  8. ZETIA [Concomitant]

REACTIONS (1)
  - RASH [None]
